FAERS Safety Report 18300453 (Version 1)
Quarter: 2020Q3

REPORT INFORMATION
  Report Type: Spontaneous
  Country: US (occurrence: US)
  Receive Date: 20200923
  Receipt Date: 20200923
  Transmission Date: 20201103
  Serious: Yes (Other)
  Sender: FDA-Public Use
  Company Number: None

PATIENT
  Sex: Male
  Weight: 103.5 kg

DRUGS (9)
  1. ALISKIREN [Suspect]
     Active Substance: ALISKIREN
     Indication: HYPERTENSION
  2. ALISKIREN [Concomitant]
     Active Substance: ALISKIREN
  3. FISH OIL [Concomitant]
     Active Substance: FISH OIL
  4. VITAMINS [Concomitant]
     Active Substance: VITAMINS
  5. FINASTERIDE. [Concomitant]
     Active Substance: FINASTERIDE
  6. LIPITOR [Concomitant]
     Active Substance: ATORVASTATIN CALCIUM
  7. AMLODIPINE [Concomitant]
     Active Substance: AMLODIPINE BESYLATE
  8. LUTEIN [Concomitant]
     Active Substance: LUTEIN
  9. NEVIBOLOL [Concomitant]
     Active Substance: NEBIVOLOL

REACTIONS (6)
  - Malaise [None]
  - Product substitution issue [None]
  - Headache [None]
  - Fatigue [None]
  - Suspected product contamination [None]
  - Confusional state [None]

NARRATIVE: CASE EVENT DATE: 20200921
